FAERS Safety Report 18244855 (Version 1)
Quarter: 2020Q3

REPORT INFORMATION
  Report Type: Spontaneous
  Country: US (occurrence: US)
  Receive Date: 20200908
  Receipt Date: 20200908
  Transmission Date: 20201103
  Serious: Yes (Hospitalization, Other)
  Sender: FDA-Public Use
  Company Number: US-PURDUE-USA-2020-0165018

PATIENT
  Age: 42 Year
  Sex: Female

DRUGS (1)
  1. OXYCONTIN [Suspect]
     Active Substance: OXYCODONE HYDROCHLORIDE
     Indication: PAIN
     Dosage: UNK
     Route: 048

REACTIONS (8)
  - Malaise [Unknown]
  - Asthenia [Unknown]
  - Pain [Unknown]
  - Drug dependence [Unknown]
  - Emotional disorder [Unknown]
  - General physical health deterioration [Unknown]
  - Road traffic accident [Unknown]
  - Withdrawal syndrome [Unknown]
